FAERS Safety Report 16044404 (Version 1)
Quarter: 2019Q1

REPORT INFORMATION
  Report Type: Spontaneous
  Country: SG (occurrence: SG)
  Receive Date: 20190306
  Receipt Date: 20190306
  Transmission Date: 20190418
  Serious: Yes (Death, Hospitalization, Other)
  Sender: FDA-Public Use
  Company Number: SG-ALLERGAN-1908607US

PATIENT
  Sex: Male

DRUGS (2)
  1. ESCITALOPRAM OXALATE - BP [Suspect]
     Active Substance: ESCITALOPRAM OXALATE
     Indication: DEPRESSION
     Dosage: 2.5 MG
     Route: 065
     Dates: start: 20180904
  2. ESCITALOPRAM OXALATE - BP [Suspect]
     Active Substance: ESCITALOPRAM OXALATE
     Indication: GENERALISED ANXIETY DISORDER
     Dosage: 10 MG
     Route: 065
     Dates: start: 2018

REACTIONS (8)
  - Underdose [Unknown]
  - Product use issue [Unknown]
  - Compulsive shopping [Unknown]
  - Mood swings [Unknown]
  - Depressed mood [Unknown]
  - Antisocial behaviour [Unknown]
  - Suicide attempt [Fatal]
  - Seizure [Unknown]

NARRATIVE: CASE EVENT DATE: 2018
